FAERS Safety Report 9793497 (Version 1)
Quarter: 2014Q1

REPORT INFORMATION
  Report Type: Spontaneous
  Country: IT (occurrence: IT)
  Receive Date: 20140102
  Receipt Date: 20140102
  Transmission Date: 20141002
  Serious: Yes (Other)
  Sender: FDA-Public Use
  Company Number: IT-ACTAVIS-2013-23797

PATIENT
  Age: 54 Year
  Sex: Male

DRUGS (5)
  1. RAPAFLO (WATSON LABORATORIES) [Suspect]
     Indication: BENIGN PROSTATIC HYPERPLASIA
     Dosage: 8 MG, DAILY
     Route: 048
     Dates: start: 20131116
  2. FINASTERIDE (UNKNOWN) [Suspect]
     Indication: BENIGN PROSTATIC HYPERPLASIA
     Dosage: 5 MG, DAILY
     Route: 048
     Dates: start: 20131116
  3. TACHIDOL [Suspect]
     Indication: BACK PAIN
     Dosage: 1 DF, PRN
     Route: 048
     Dates: start: 20131115, end: 20131118
  4. MODITEN-DEPO                       /00000603/ [Concomitant]
     Indication: PRODUCT USED FOR UNKNOWN INDICATION
     Dosage: UNK, UNKNOWN
     Route: 065
     Dates: start: 20110101, end: 20131119
  5. EN [Concomitant]
     Indication: PRODUCT USED FOR UNKNOWN INDICATION
     Dosage: UNK, UNKNOWN
     Route: 065
     Dates: start: 20040101, end: 20131119

REACTIONS (2)
  - Fluid retention [Not Recovered/Not Resolved]
  - Renal pain [Not Recovered/Not Resolved]
